FAERS Safety Report 19862357 (Version 1)
Quarter: 2021Q3

REPORT INFORMATION
  Report Type: Spontaneous
  Country: DE (occurrence: DE)
  Receive Date: 20210921
  Receipt Date: 20210921
  Transmission Date: 20211014
  Serious: Yes (Hospitalization)
  Sender: FDA-Public Use
  Company Number: DE-TEVA-2021-DE-1953860

PATIENT
  Age: 82 Year
  Sex: Female

DRUGS (17)
  1. ESCITALOPRAM [Suspect]
     Active Substance: ESCITALOPRAM OXALATE
     Dosage: 10 MG, 2?0?1?0
     Route: 048
  2. ATORVASTATIN [Concomitant]
     Active Substance: ATORVASTATIN
     Dosage: 2 DOSAGE FORMS DAILY; 20 MG, 0?0?2?0
     Route: 048
  3. DIGITOXIN [Concomitant]
     Active Substance: DIGITOXIN
     Dosage: 0.05 MG, MONDAY WEDNESDAY FRIDAY MORNING ONE TABLET
     Route: 048
  4. DULCOLAX NOS [Concomitant]
     Active Substance: BISACODYL OR DOCUSATE SODIUM
     Dosage: 10 MG, IF NECESSARY
     Route: 048
  5. TORASEMID [Concomitant]
     Active Substance: TORSEMIDE
     Dosage: 10 MILLIGRAM DAILY; 1?0?0?0
     Route: 048
  6. MIRTAZAPIN [Suspect]
     Active Substance: MIRTAZAPINE
     Dosage: 15 MILLIGRAM DAILY; 0?0?1?0
     Route: 048
  7. PERENTEROL 250MG [Concomitant]
     Dosage: 250 MG, IF NECESSARY
     Route: 048
  8. METAMIZOL [Concomitant]
     Active Substance: METAMIZOLE SODIUM
     Dosage: IF NECESSARY, DROPS
     Route: 048
  9. PANTOPRAZOL [Concomitant]
     Active Substance: PANTOPRAZOLE SODIUM
     Dosage: 40 MILLIGRAM DAILY;  1?0?0?0
     Route: 048
  10. LETROZOL [Suspect]
     Active Substance: LETROZOLE
     Dosage: 2.5 MILLIGRAM DAILY; 1?0?0?0
     Route: 048
  11. VITAMIN B12 100 MCG JENAPHARM [Concomitant]
     Dosage: 1000 MCG, WEEKLY
     Route: 058
  12. METOPROLOL. [Suspect]
     Active Substance: METOPROLOL
     Dosage: 47.4 MILLIGRAM DAILY;  1?0?1?0
     Route: 048
  13. XARELTO [Suspect]
     Active Substance: RIVAROXABAN
     Dosage: 15 MILLIGRAM DAILY; 1?0?0?0
     Route: 048
  14. ROACTEMRA 162MG S.C. [Suspect]
     Active Substance: TOCILIZUMAB
     Dosage: 162 MG, THURSDAYS
     Route: 058
  15. LEVETIRACETAM. [Concomitant]
     Active Substance: LEVETIRACETAM
     Dosage: 2000 MILLIGRAM DAILY; 1?0?1?0
     Route: 048
  16. BAYOTENSIN AKUT [Concomitant]
     Active Substance: NITRENDIPINE
     Dosage: IF NECESSARY, VIAL
     Route: 060
  17. CALCIUM VITAMIN D3 ACIS 500MG/400I.E. [Concomitant]
     Dosage: 800 IU (INTERNATIONAL UNIT) DAILY;  1?1?0?0
     Route: 048

REACTIONS (2)
  - Dizziness [Unknown]
  - Fall [Unknown]
